FAERS Safety Report 14300849 (Version 1)
Quarter: 2017Q4

REPORT INFORMATION
  Report Type: Spontaneous
  Country: US (occurrence: US)
  Receive Date: 20171218
  Receipt Date: 20171218
  Transmission Date: 20180321
  Serious: No
  Sender: FDA-Public Use
  Company Number: None

PATIENT
  Age: 70 Year
  Sex: Male

DRUGS (1)
  1. ENBREL [Suspect]
     Active Substance: ETANERCEPT

REACTIONS (6)
  - Hypoaesthesia [None]
  - Muscular weakness [None]
  - Condition aggravated [None]
  - Paraesthesia [None]
  - Sensory loss [None]
  - Arthralgia [None]

NARRATIVE: CASE EVENT DATE: 20171218
